FAERS Safety Report 19304706 (Version 1)
Quarter: 2021Q2

REPORT INFORMATION
  Report Type: Spontaneous
  Country: NO (occurrence: NO)
  Receive Date: 20210526
  Receipt Date: 20210526
  Transmission Date: 20210717
  Serious: Yes (Hospitalization)
  Sender: FDA-Public Use
  Company Number: NO-SUN PHARMACEUTICAL INDUSTRIES LTD-2021RR-298161

PATIENT
  Age: 42 Year
  Sex: Female

DRUGS (8)
  1. VIMOVO [Concomitant]
     Active Substance: ESOMEPRAZOLE MAGNESIUM\NAPROXEN
     Indication: PRODUCT USED FOR UNKNOWN INDICATION
     Dosage: 1 TABLET UP TO 2 TIMES DAILY ()
     Route: 048
  2. METOCLOPRAMIDE ORIFARM [Concomitant]
     Indication: PRODUCT USED FOR UNKNOWN INDICATION
     Dosage: 10 MILLIGRAM, UNK, 1 TABLET AS REQUIRED UP TO 3 TIMES DAILY
     Route: 048
  3. EMGALITY [Concomitant]
     Active Substance: GALCANEZUMAB-GNLM
     Indication: PRODUCT USED FOR UNKNOWN INDICATION
     Dosage: 1 DOSAGE FORM, DAILY
     Route: 058
  4. IMOVANE [Concomitant]
     Active Substance: ZOPICLONE
     Indication: PRODUCT USED FOR UNKNOWN INDICATION
     Dosage: 1/2 TABLET UP TO 1 TIMES DAILY ()
     Route: 048
  5. PANODIL [Concomitant]
     Active Substance: ACETAMINOPHEN
     Indication: PRODUCT USED FOR UNKNOWN INDICATION
     Dosage: 1 GRAM, QID
     Route: 048
  6. SUMATRIPTAN SUN 6MG/0.5ML INJEKSJONSV?SKE, OPPL?SNING [Suspect]
     Active Substance: SUMATRIPTAN
     Indication: MIGRAINE
     Dosage: 6 MILLIGRAM, UNK, 6MG SUBCUTANEOUS INJECTIONS APPROXIMATELY 6 DAYS PER MONTH. ; AS NECESSARY
     Route: 058
     Dates: end: 20210314
  7. NARAMIG [Interacting]
     Active Substance: NARATRIPTAN HYDROCHLORIDE
     Indication: MIGRAINE
     Dosage: 2,5 OR 5 MG APPR.. 6 DAYS/MONTH ()
     Route: 050
     Dates: end: 20210314
  8. ZOFRAN [Concomitant]
     Active Substance: ONDANSETRON HYDROCHLORIDE
     Indication: PRODUCT USED FOR UNKNOWN INDICATION
     Dosage: 1 TABLET AS REQUIRED UP TO 2 TIMES DAILY ()
     Route: 048

REACTIONS (4)
  - Drug interaction [Recovering/Resolving]
  - Abdominal pain [Recovering/Resolving]
  - Terminal ileitis [Recovering/Resolving]
  - Intentional product use issue [Recovering/Resolving]

NARRATIVE: CASE EVENT DATE: 20210308
